FAERS Safety Report 9834560 (Version 2)
Quarter: 2014Q1

REPORT INFORMATION
  Report Type: Spontaneous
  Country: US (occurrence: US)
  Receive Date: 20140122
  Receipt Date: 20140122
  Transmission Date: 20141002
  Serious: No
  Sender: FDA-Public Use
  Company Number: US-B.I. PHARMACEUTICALS,INC./RIDGEFIELD-2013-BI-02093PF

PATIENT
  Age: 68 Year
  Sex: Female

DRUGS (5)
  1. SPIRIVA [Suspect]
     Dosage: 18 MCG
     Dates: start: 201211
  2. NORVASC [Concomitant]
     Indication: HYPERTENSION
     Dosage: 5 MG
  3. OXYCODONE [Concomitant]
  4. TYLENOL [Concomitant]
  5. FLONASE [Concomitant]

REACTIONS (2)
  - Nasopharyngitis [Unknown]
  - Drug ineffective [Unknown]
